FAERS Safety Report 7496130-0 (Version None)
Quarter: 2011Q2

REPORT INFORMATION
  Report Type: 
  Country: None (occurrence: None)
  Receive Date: 20110523
  Receipt Date: 20110518
  Transmission Date: 20111010
  Serious: Yes (Death, Hospitalization)
  Sender: FDA-Public Use
  Company Number: CA-SANOFI-AVENTIS-2011SA023177

PATIENT
  Sex: Male

DRUGS (7)
  1. LEUCOVORIN CALCIUM [Concomitant]
  2. FLUOROURACIL [Concomitant]
     Dates: start: 20110307, end: 20110307
  3. OXALIPLATIN [Suspect]
     Route: 042
     Dates: start: 20110307, end: 20110307
  4. IRINOTECAN HYDROCHLORIDE [Concomitant]
     Dates: start: 20110307, end: 20110307
  5. FLUOROURACIL [Concomitant]
  6. OXALIPLATIN [Suspect]
     Route: 042
  7. IRINOTECAN HYDROCHLORIDE [Concomitant]

REACTIONS (6)
  - SEPSIS [None]
  - DIARRHOEA [None]
  - PANCYTOPENIA [None]
  - THROMBOCYTOPENIA [None]
  - FEBRILE NEUTROPENIA [None]
  - GASTROINTESTINAL HAEMORRHAGE [None]
